FAERS Safety Report 7390078-8 (Version None)
Quarter: 2011Q2

REPORT INFORMATION
  Report Type: 
  Country: None (occurrence: None)
  Receive Date: 20110401
  Receipt Date: 20110330
  Transmission Date: 20111010
  Serious: Yes (Other)
  Sender: FDA-Public Use
  Company Number: US-PFIZER INC-2011071440

PATIENT
  Sex: Female

DRUGS (8)
  1. LIPITOR [Suspect]
     Dosage: UNK
  2. PLAVIX [Concomitant]
     Dosage: UNK
  3. LISINOPRIL [Concomitant]
     Dosage: UNK
  4. SYNTHROID [Concomitant]
     Dosage: UNK
  5. NORVASC [Suspect]
     Dosage: UNK
  6. EVISTA [Concomitant]
     Dosage: UNK
  7. RANITIDINE [Concomitant]
     Dosage: UNK
  8. TIMOLOL [Concomitant]
     Dosage: UNK

REACTIONS (1)
  - SINUS CONGESTION [None]
